FAERS Safety Report 21761967 (Version 1)
Quarter: 2022Q4

REPORT INFORMATION
  Report Type: Spontaneous
  Country: US (occurrence: None)
  Receive Date: 20221221
  Receipt Date: 20221221
  Transmission Date: 20230113
  Serious: Yes (Other)
  Sender: FDA-Public Use
  Company Number: None

PATIENT
  Age: 64 Year
  Sex: Female
  Weight: 78.75 kg

DRUGS (6)
  1. PACLITAXEL [Suspect]
     Active Substance: PACLITAXEL
     Indication: Surgery
     Dosage: OTHER QUANTITY : 1 IV;?OTHER FREQUENCY : ONCE WEEKLY;?
     Route: 042
  2. LYRICA [Concomitant]
     Active Substance: PREGABALIN
  3. LETROZOLE [Concomitant]
     Active Substance: LETROZOLE
  4. VITAMIN B6 [Concomitant]
     Active Substance: PYRIDOXINE HYDROCHLORIDE
  5. VITAMIN B12 [Concomitant]
     Active Substance: CYANOCOBALAMIN
  6. FOLIC ACID [Concomitant]
     Active Substance: FOLIC ACID

REACTIONS (9)
  - Hypoaesthesia [None]
  - Hypoaesthesia [None]
  - Paraesthesia [None]
  - Gait disturbance [None]
  - Unevaluable event [None]
  - Hypoaesthesia [None]
  - Fall [None]
  - Rib fracture [None]
  - Loss of personal independence in daily activities [None]

NARRATIVE: CASE EVENT DATE: 20220803
